FAERS Safety Report 5552060-2 (Version None)
Quarter: 2007Q4

REPORT INFORMATION
  Report Type: 
  Country: None (occurrence: None)
  Receive Date: 20071212
  Receipt Date: 20071203
  Transmission Date: 20080405
  Serious: Yes (Life-Threatening)
  Sender: FDA-Public Use
  Company Number: FR-PFIZER INC-2007102945

PATIENT
  Sex: Female

DRUGS (14)
  1. CAMPTO [Suspect]
     Indication: COLORECTAL CANCER METASTATIC
     Dates: start: 20070726, end: 20070726
  2. CAMPTO [Suspect]
     Dates: start: 20070813, end: 20070813
  3. CAMPTO [Suspect]
     Dosage: DAILY DOSE:350MG
     Route: 042
     Dates: start: 20070914, end: 20070914
  4. AVASTIN [Suspect]
     Indication: COLORECTAL CANCER METASTATIC
     Dates: start: 20070726, end: 20070726
  5. AVASTIN [Suspect]
     Dates: start: 20070813, end: 20070813
  6. AVASTIN [Suspect]
     Dosage: DAILY DOSE:400MG
     Dates: start: 20070914, end: 20070914
  7. FLUOROURACIL [Suspect]
     Indication: COLON CANCER METASTATIC
     Dates: start: 20070726, end: 20070726
  8. FLUOROURACIL [Suspect]
     Dates: start: 20070813, end: 20070813
  9. FLUOROURACIL [Suspect]
     Route: 042
     Dates: start: 20070914, end: 20070914
  10. ALPRAZOLAM [Suspect]
     Route: 048
  11. EFFEXOR [Suspect]
     Route: 048
  12. CALCIDOSE [Suspect]
     Dosage: TEXT:2 DOSES
     Route: 048
  13. INIPOMP [Suspect]
     Dosage: DAILY DOSE:20MG
     Route: 048
  14. CORTANCYL [Suspect]
     Dosage: DAILY DOSE:20MG
     Route: 048

REACTIONS (2)
  - LARGE INTESTINE PERFORATION [None]
  - PERITONITIS [None]
